FAERS Safety Report 10457912 (Version 1)
Quarter: 2014Q3

REPORT INFORMATION
  Report Type: Spontaneous
  Country: IN (occurrence: IN)
  Receive Date: 20140916
  Receipt Date: 20140916
  Transmission Date: 20150326
  Serious: Yes (Other)
  Sender: FDA-Public Use
  Company Number: IN-BAXTER-2014BAX054764

PATIENT
  Age: 80 Year
  Sex: Male

DRUGS (1)
  1. DESFLURANE LIQUID FOR INHALATION [Suspect]
     Active Substance: DESFLURANE
     Indication: ANAESTHESIA
     Route: 055

REACTIONS (2)
  - Hypothermia [Recovered/Resolved]
  - Delayed recovery from anaesthesia [Recovered/Resolved]

NARRATIVE: CASE EVENT DATE: 20140908
